FAERS Safety Report 9180715 (Version 2)
Quarter: 2013Q2

REPORT INFORMATION
  Report Type: Spontaneous
  Country: US (occurrence: None)
  Receive Date: 20120601
  Receipt Date: 20120831
  Transmission Date: 20140414
  Serious: Yes (Death, Hospitalization)
  Sender: FDA-Public Use
  Company Number: 163-FK228-12031257

PATIENT
  Age: 47 Year
  Sex: Female
  Weight: 70.13 kg

DRUGS (11)
  1. ROMIDEPSIN [Suspect]
     Indication: NON-SMALL CELL LUNG CANCER
     Dosage: 3 ON 1 OFF
     Route: 042
     Dates: start: 20120130, end: 20120305
  2. ERLOTINIB [Suspect]
     Indication: NON-SMALL CELL LUNG CANCER
     Route: 048
     Dates: start: 20120201, end: 20120306
  3. ALBUTEROL (SALBUTAMOL) (UNKNOWN) [Concomitant]
  4. ONDANSETRON (ONDANSETRON) (UNKNOWN) [Concomitant]
  5. LORAZEPAM (LORAZEPAM) [Concomitant]
  6. HYDROCODONE/ACETAMINOPHEN (REMEDEINE) (UNKNOWN) [Concomitant]
  7. VALSARTAN (VALSARTAN) (UNKNOWN) [Concomitant]
  8. CITALOPRAM (CITALOPRAM) (UNKNOWN) [Concomitant]
  9. PROCHLORPERAZINE (PROCHLORPERAZINE) (UNKNOWN) [Concomitant]
  10. LOPERAMIDE (LOPERAMIDE) (UNKNOWN) [Concomitant]
  11. FENTANYL (FENTANYL) (POULTICE OR PATCH) [Concomitant]

REACTIONS (5)
  - Nausea [None]
  - Vomiting [None]
  - Diarrhoea [None]
  - Arrhythmia [None]
  - Renal failure acute [None]
